FAERS Safety Report 5248428-4 (Version None)
Quarter: 2007Q1

REPORT INFORMATION
  Report Type: 
  Country: None (occurrence: None)
  Receive Date: 20070222
  Receipt Date: 20070214
  Transmission Date: 20070707
  Serious: Yes (Hospitalization)
  Sender: FDA-Public Use
  Company Number: TPA2007A00288

PATIENT
  Age: 69 Year
  Sex: Male

DRUGS (3)
  1. ACTOS [Suspect]
     Indication: DIABETES MELLITUS
     Dosage: PER ORAL
     Route: 048
     Dates: start: 20041101
  2. ACTOS [Suspect]
     Indication: DIABETES MELLITUS
     Dosage: PER ORAL
     Route: 048
     Dates: start: 20050101
  3. NOVOLOG MIX 70/30 (INSULIN ASPART, PROTAMINE INSULIN ASPART) [Concomitant]

REACTIONS (3)
  - BLOOD GLUCOSE INCREASED [None]
  - DYSPNOEA [None]
  - GENERALISED OEDEMA [None]
